FAERS Safety Report 5631441-2 (Version None)
Quarter: 2008Q1

REPORT INFORMATION
  Report Type: 
  Country: None (occurrence: None)
  Receive Date: 20080219
  Receipt Date: 20080212
  Transmission Date: 20080703
  Serious: Yes (Other)
  Sender: FDA-Public Use
  Company Number: AU-ALLERGAN-0801666US

PATIENT
  Sex: Female

DRUGS (2)
  1. BOTOX [Suspect]
     Indication: SKIN WRINKLING
     Dosage: 36 UNITS, SINGLE
     Route: 030
     Dates: start: 20080124, end: 20080124
  2. BOTOX [Suspect]
     Dosage: 20 UNITS, SINGLE
     Route: 030
     Dates: start: 20071001, end: 20071001

REACTIONS (3)
  - CHEST PAIN [None]
  - EYELID PTOSIS [None]
  - HYPOAESTHESIA [None]
